FAERS Safety Report 6596257-1 (Version None)
Quarter: 2010Q1

REPORT INFORMATION
  Report Type: 
  Country: None (occurrence: None)
  Receive Date: 20100219
  Receipt Date: 20100219
  Transmission Date: 20100710
  Serious: Yes (Hospitalization)
  Sender: FDA-Public Use
  Company Number: None

PATIENT
  Age: 62 Year
  Sex: Male

DRUGS (1)
  1. ROSUVASTATIN [Suspect]
     Indication: HYPERLIPIDAEMIA
     Dosage: 20 MG EVERY DAY PO
     Route: 048
     Dates: start: 20080812, end: 20081215

REACTIONS (8)
  - CARDIAC MURMUR [None]
  - EXCORIATION [None]
  - HERPES ZOSTER [None]
  - NERVOUSNESS [None]
  - RASH PAPULAR [None]
  - RASH PRURITIC [None]
  - SCAB [None]
  - SKIN ULCER [None]
